FAERS Safety Report 8873906 (Version 1)
Quarter: 2012Q4

REPORT INFORMATION
  Report Type: 
  Country: US (occurrence: US)
  Receive Date: 20121030
  Receipt Date: 20121030
  Transmission Date: 20130627
  Serious: Yes (Death, Hospitalization)
  Sender: FDA-Public Use
  Company Number: US-B.I. PHARMACEUTICALS,INC./RIDGEFIELD-2012-BP-26488BP

PATIENT
  Age: 68 None
  Sex: Male

DRUGS (1)
  1. PRADAXA [Suspect]
     Indication: ATRIAL FIBRILLATION
     Dosage: 150 mg
     Route: 048
     Dates: end: 201207

REACTIONS (4)
  - Hepatocellular carcinoma [Fatal]
  - Haemorrhage [Fatal]
  - Atrial fibrillation [Recovered/Resolved]
  - Nephropathy [Recovered/Resolved]
